FAERS Safety Report 5258392-X (Version None)
Quarter: 2007Q1

REPORT INFORMATION
  Report Type: 
  Country: None (occurrence: None)
  Receive Date: 20070305
  Receipt Date: 20070216
  Transmission Date: 20070707
  Serious: Yes (Hospitalization)
  Sender: FDA-Public Use
  Company Number: 2007RR-05877

PATIENT
  Age: 5 Month
  Sex: Male

DRUGS (2)
  1. CEFACLOR MR(CEFACLOR) UNKNOWN [Suspect]
  2. IBUPROFEN [Suspect]

REACTIONS (5)
  - CORONARY ARTERY ANEURYSM [None]
  - FACIAL PALSY [None]
  - KAWASAKI'S DISEASE [None]
  - LOWER MOTOR NEURONE LESION [None]
  - VIITH NERVE PARALYSIS [None]
